FAERS Safety Report 6024955-7 (Version None)
Quarter: 2008Q4

REPORT INFORMATION
  Report Type: 
  Country: None (occurrence: None)
  Receive Date: 20081231
  Receipt Date: 20081219
  Transmission Date: 20090506
  Serious: Yes (Hospitalization)
  Sender: FDA-Public Use
  Company Number: BR-PFIZER INC-2008158257

PATIENT

DRUGS (9)
  1. BLINDED *PLACEBO [Suspect]
     Indication: ARTHRITIS
     Dosage: UNK
     Route: 048
     Dates: start: 20080924, end: 20080924
  2. BLINDED CELECOXIB [Suspect]
     Indication: ARTHRITIS
     Dosage: UNK
     Route: 048
     Dates: start: 20080924, end: 20080924
  3. IBUPROFEN TABLETS [Suspect]
     Indication: ARTHRITIS
     Dosage: UNK
     Route: 048
     Dates: start: 20080924, end: 20080924
  4. NAPROXEN [Suspect]
     Indication: ARTHRITIS
     Dosage: UNK
     Route: 048
     Dates: start: 20080924, end: 20080924
  5. ENALAPRIL MALEATE [Concomitant]
     Route: 048
     Dates: start: 20050101
  6. ATENOLOL [Concomitant]
     Route: 048
     Dates: start: 20050101
  7. HYDROCHLOROTHIAZIDE [Concomitant]
     Route: 048
     Dates: start: 19870101
  8. METFORMIN HYDROCHLORIDE [Concomitant]
     Route: 048
     Dates: start: 20020101
  9. VERTEX [Concomitant]
     Route: 048
     Dates: start: 19970101

REACTIONS (3)
  - DRUG INTOLERANCE [None]
  - NAUSEA [None]
  - OSTEOARTHRITIS [None]
